FAERS Safety Report 10185870 (Version 2)
Quarter: 2014Q2

REPORT INFORMATION
  Report Type: Spontaneous
  Country: US (occurrence: US)
  Receive Date: 20140521
  Receipt Date: 20140521
  Transmission Date: 20141212
  Serious: Yes (Other)
  Sender: FDA-Public Use
  Company Number: US-ASTRAZENECA-2014SE17225

PATIENT
  Age: 38 Year
  Sex: Female
  Weight: 58.5 kg

DRUGS (7)
  1. SEROQUEL XR [Suspect]
     Indication: BIPOLAR DISORDER
     Route: 048
     Dates: start: 201403, end: 201403
  2. SEROQUEL XR [Suspect]
     Indication: BIPOLAR DISORDER
     Dosage: 50-150 MG AT NIGHT
     Route: 048
     Dates: start: 20140220, end: 20140320
  3. SOMETHING FOR PAIN [Concomitant]
  4. ANTIDEPRESSANTE [Concomitant]
  5. NORCO [Concomitant]
     Indication: PAIN
     Dosage: 5/325
     Route: 048
     Dates: start: 20130920
  6. NORCO [Concomitant]
     Indication: MYALGIA
     Dosage: 5/325
     Route: 048
     Dates: start: 20130920
  7. LYRICA [Concomitant]
     Dates: start: 20130920, end: 20140220

REACTIONS (4)
  - Gait disturbance [Recovered/Resolved]
  - Muscle twitching [Recovered/Resolved]
  - Dyskinesia [Recovered/Resolved]
  - Asthenia [Recovered/Resolved]
